FAERS Safety Report 23481835 (Version 1)
Quarter: 2024Q1

REPORT INFORMATION
  Report Type: Spontaneous
  Country: US (occurrence: US)
  Receive Date: 20240205
  Receipt Date: 20240205
  Transmission Date: 20240409
  Serious: Yes (Other)
  Sender: FDA-Public Use
  Company Number: US-TEVA-VS-3149884

PATIENT
  Age: 79 Year
  Sex: Female

DRUGS (4)
  1. WARFARIN SODIUM [Suspect]
     Active Substance: WARFARIN SODIUM
     Indication: Thrombosis
     Route: 065
     Dates: start: 202401
  2. WARFARIN SODIUM [Suspect]
     Active Substance: WARFARIN SODIUM
     Indication: Thrombosis
     Dosage: TIME INTERVAL: 0.33333333 DAYS
     Route: 065
  3. WARFARIN SODIUM [Suspect]
     Active Substance: WARFARIN SODIUM
     Indication: Thrombosis
     Route: 065
     Dates: start: 20231202
  4. COREG [Concomitant]
     Active Substance: CARVEDILOL
     Indication: Hypertension
     Dosage: AS NEEDED
     Route: 065

REACTIONS (9)
  - Haematochezia [Unknown]
  - Emergency care [Unknown]
  - Dizziness [Unknown]
  - Asthenia [Unknown]
  - International normalised ratio abnormal [Unknown]
  - Heart rate increased [Unknown]
  - Dyspnoea [Unknown]
  - Fatigue [Unknown]
  - Drug ineffective [Unknown]

NARRATIVE: CASE EVENT DATE: 20231214
